FAERS Safety Report 23555657 (Version 1)
Quarter: 2024Q1

REPORT INFORMATION
  Report Type: Spontaneous
  Country: US (occurrence: US)
  Receive Date: 20240222
  Receipt Date: 20240222
  Transmission Date: 20240410
  Serious: Yes (Hospitalization)
  Sender: FDA-Public Use
  Company Number: US-SANDOZ-SDZ2024US017026

PATIENT
  Age: 46 Year
  Sex: Male
  Weight: 134 kg

DRUGS (5)
  1. CANDESARTAN [Suspect]
     Active Substance: CANDESARTAN
     Indication: Hypertension
     Dosage: 16 MG, QD
     Route: 048
     Dates: start: 2020
  2. CETUXIMAB [Suspect]
     Active Substance: CETUXIMAB
     Indication: Colorectal cancer metastatic
     Dosage: 1100 MG, CYCLIC (EVERY 2 WEEKS)
     Route: 042
     Dates: start: 20230727, end: 20230727
  3. ENCORAFENIB [Suspect]
     Active Substance: ENCORAFENIB
     Indication: Colorectal cancer metastatic
     Dosage: 300 MG, QD
     Route: 048
     Dates: start: 20230713, end: 20230728
  4. IBUPROFEN [Suspect]
     Active Substance: IBUPROFEN
     Indication: Arthralgia
     Dosage: 400 MG
     Route: 048
     Dates: start: 2020
  5. CLEMASTINE [Concomitant]
     Active Substance: CLEMASTINE
     Indication: Antiallergic therapy
     Dosage: UNK
     Route: 040
     Dates: start: 20230727, end: 20230727

REACTIONS (1)
  - Acute kidney injury [Recovering/Resolving]

NARRATIVE: CASE EVENT DATE: 20230727
